FAERS Safety Report 8443473-X (Version None)
Quarter: 2012Q2

REPORT INFORMATION
  Report Type: 
  Country: None (occurrence: None)
  Receive Date: 20120618
  Receipt Date: 20120609
  Transmission Date: 20120825
  Serious: Yes (Other)
  Sender: FDA-Public Use
  Company Number: US-BAYER-2012-058037

PATIENT
  Sex: Female

DRUGS (1)
  1. MIRENA [Suspect]
     Dosage: 20 ?G/D, CONT

REACTIONS (9)
  - ANXIETY [None]
  - UNEVALUABLE EVENT [None]
  - DIZZINESS [None]
  - FATIGUE [None]
  - HYPOAESTHESIA [None]
  - PANIC ATTACK [None]
  - VERTIGO [None]
  - MUSCLE TWITCHING [None]
  - HYPOTHYROIDISM [None]
